FAERS Safety Report 7471591-1 (Version None)
Quarter: 2011Q2

REPORT INFORMATION
  Report Type: 
  Country: None (occurrence: None)
  Receive Date: 20110511
  Receipt Date: 20110509
  Transmission Date: 20111010
  Serious: No
  Sender: FDA-Public Use
  Company Number: US-BAYER-2011-039655

PATIENT
  Sex: Female

DRUGS (1)
  1. YASMIN [Suspect]

REACTIONS (1)
  - SINUSITIS [None]
